FAERS Safety Report 5166841-0 (Version None)
Quarter: 2006Q4

REPORT INFORMATION
  Report Type: 
  Country: None (occurrence: None)
  Receive Date: 20061207
  Receipt Date: 20060520
  Transmission Date: 20070319
  Serious: Yes (Hospitalization)
  Sender: FDA-Public Use
  Company Number: IT-ROCHE-448675

PATIENT
  Age: 80 Year
  Sex: Male

DRUGS (10)
  1. TICLID [Suspect]
     Route: 048
     Dates: start: 20040218, end: 20060218
  2. TORADOL [Suspect]
     Indication: ARTHRALGIA
     Route: 030
     Dates: start: 20050218, end: 20060218
  3. AULIN [Suspect]
     Indication: DRUG USE FOR UNKNOWN INDICATION
     Route: 048
     Dates: start: 20050218, end: 20060218
  4. TACHIDOL [Suspect]
     Indication: DRUG USE FOR UNKNOWN INDICATION
     Dosage: 1 SACHET/DAY, PRN
     Route: 048
     Dates: start: 20050218, end: 20060218
  5. GABAPENTIN [Concomitant]
     Dosage: ROUTE REPORTED AS 'OS'
     Route: 048
  6. TRENTAL [Concomitant]
     Dosage: ROUTE REPORTED AS 'OS'
     Route: 048
  7. DROMOS [Concomitant]
     Dosage: ROUTE REPORTED AS 'OS'
     Route: 048
  8. OMNIC [Concomitant]
     Dosage: ROUTE REPORTED AS 'OS'
     Route: 048
  9. ACTRAPID [Concomitant]
     Route: 058
  10. CLONAZEPAM [Concomitant]
     Dosage: ROUTE REPORTED AS 'OS'
     Route: 048

REACTIONS (4)
  - ANAEMIA [None]
  - ASTHENIA [None]
  - GASTRIC ULCER HAEMORRHAGE [None]
  - MELAENA [None]
